FAERS Safety Report 6643608-5 (Version None)
Quarter: 2010Q1

REPORT INFORMATION
  Report Type: 
  Country: None (occurrence: None)
  Receive Date: 20100320
  Receipt Date: 20100310
  Transmission Date: 20100710
  Serious: Yes (Other)
  Sender: FDA-Public Use
  Company Number: GR-JNJFOC-20100304099

PATIENT
  Sex: Male

DRUGS (3)
  1. RISPERDAL [Suspect]
     Indication: PSYCHOTIC DISORDER
     Route: 065
  2. ALOPERIDIN [Suspect]
     Indication: PSYCHOTIC DISORDER
     Route: 065
  3. SEROQUEL [Concomitant]
     Indication: PSYCHOTIC DISORDER
     Route: 065

REACTIONS (1)
  - THROMBOSIS [None]
